FAERS Safety Report 7845286-6 (Version None)
Quarter: 2011Q4

REPORT INFORMATION
  Report Type: 
  Country: None (occurrence: None)
  Receive Date: 20111025
  Receipt Date: 20110824
  Transmission Date: 20120403
  Serious: No
  Sender: FDA-Public Use
  Company Number: US-BAYER-2011-083801

PATIENT
  Sex: Male

DRUGS (3)
  1. ASPIRIN [Concomitant]
     Indication: BACK PAIN
     Dosage: 1000 MG QAM
  2. ACETAMINOPHEN [Concomitant]
     Dosage: 1000 MG QAM
  3. ALEVE (CAPLET) [Suspect]
     Indication: BACK PAIN
     Dosage: 1000 MG QAM

REACTIONS (1)
  - MEDICATION ERROR [None]
